FAERS Safety Report 5877727-8 (Version None)
Quarter: 2008Q3

REPORT INFORMATION
  Report Type: 
  Country: None (occurrence: None)
  Receive Date: 20080911
  Receipt Date: 20080904
  Transmission Date: 20090109
  Serious: Yes (Other)
  Sender: FDA-Public Use
  Company Number: US-JNJCH-2008022763

PATIENT
  Sex: Male
  Weight: 89.8 kg

DRUGS (1)
  1. FRESHBURST LISTERINE [Suspect]
     Indication: DENTAL DISORDER PROPHYLAXIS
     Dosage: TEXT:3/4 OF THE CAP ONCE
     Route: 048

REACTIONS (4)
  - INCORRECT DOSE ADMINISTERED [None]
  - LIP EXFOLIATION [None]
  - LIP SWELLING [None]
  - OROPHARYNGEAL BLISTERING [None]
